FAERS Safety Report 26183161 (Version 1)
Quarter: 2025Q4

REPORT INFORMATION
  Report Type: Spontaneous
  Country: CA (occurrence: CA)
  Receive Date: 20251221
  Receipt Date: 20251221
  Transmission Date: 20260119
  Serious: Yes (Other)
  Sender: AUROBINDO
  Company Number: CA-AUR-001092543

PATIENT
  Age: 41 Year
  Sex: Male
  Weight: 160 kg

DRUGS (1)
  1. FINASTERIDE [Suspect]
     Active Substance: FINASTERIDE
     Indication: Alopecia
     Dosage: 0.5 MILLIGRAM, ONCE A DAY
     Route: 065

REACTIONS (18)
  - Arthralgia [Recovering/Resolving]
  - Bradyphrenia [Recovering/Resolving]
  - Cognitive disorder [Recovering/Resolving]
  - Depression [Recovering/Resolving]
  - Disturbance in sexual arousal [Recovering/Resolving]
  - Ejaculation disorder [Recovering/Resolving]
  - Fatigue [Recovering/Resolving]
  - Flat affect [Recovering/Resolving]
  - Insomnia [Recovering/Resolving]
  - Loss of libido [Recovering/Resolving]
  - Male orgasmic disorder [Recovering/Resolving]
  - Memory impairment [Recovering/Resolving]
  - Muscle atrophy [Recovering/Resolving]
  - Muscular weakness [Recovering/Resolving]
  - Semen analysis abnormal [Recovering/Resolving]
  - Sexual dysfunction [Recovering/Resolving]
  - Testicular atrophy [Recovering/Resolving]
  - Erectile dysfunction [Recovering/Resolving]
